FAERS Safety Report 11283690 (Version 5)
Quarter: 2016Q1

REPORT INFORMATION
  Report Type: Report from Study
  Country: US (occurrence: US)
  Receive Date: 20150720
  Receipt Date: 20160318
  Transmission Date: 20160525
  Serious: No
  Sender: FDA-Public Use
  Company Number: PHEH2015US010808

PATIENT
  Age: 34 Year
  Sex: Female
  Weight: 90.71 kg

DRUGS (1)
  1. GILENYA [Suspect]
     Active Substance: FINGOLIMOD HYDROCHLORIDE
     Indication: MULTIPLE SCLEROSIS
     Dosage: 0.5 MG, QD
     Route: 048
     Dates: start: 20150603

REACTIONS (10)
  - Dizziness [Recovered/Resolved]
  - Vision blurred [Recovered/Resolved]
  - Malaise [Not Recovered/Not Resolved]
  - Diarrhoea [Recovered/Resolved]
  - Headache [Recovered/Resolved]
  - Migraine [Recovered/Resolved]
  - Somnolence [Recovered/Resolved]
  - Back pain [Recovered/Resolved]
  - Abdominal distension [Recovered/Resolved]
  - Fatigue [Recovered/Resolved]

NARRATIVE: CASE EVENT DATE: 20150603
